FAERS Safety Report 20551161 (Version 2)
Quarter: 2022Q1

REPORT INFORMATION
  Report Type: Spontaneous
  Country: BR (occurrence: None)
  Receive Date: 20220304
  Receipt Date: 20220307
  Transmission Date: 20220423
  Serious: No
  Sender: FDA-Public Use
  Company Number: BR-Orion Corporation ORION PHARMA-ENTC2022-0047

PATIENT

DRUGS (2)
  1. STALEVO [Suspect]
     Active Substance: CARBIDOPA\ENTACAPONE\LEVODOPA
     Indication: Product used for unknown indication
     Route: 065
  2. COMTAN [Concomitant]
     Active Substance: ENTACAPONE
     Route: 065

REACTIONS (1)
  - Drug intolerance [Unknown]
